FAERS Safety Report 23623846 (Version 3)
Quarter: 2024Q1

REPORT INFORMATION
  Report Type: Report from Study
  Country: CA (occurrence: CA)
  Receive Date: 20240312
  Receipt Date: 20240312
  Transmission Date: 20240410
  Serious: Yes (Hospitalization)
  Sender: FDA-Public Use
  Company Number: CA-HLS-202400695

PATIENT
  Sex: Male

DRUGS (3)
  1. CLOZARIL [Suspect]
     Active Substance: CLOZAPINE
     Indication: Product used for unknown indication
     Dosage: TITRATED UP TO HIS CURRENT DOSE OF 150 MG QHS
     Route: 048
     Dates: start: 20240125
  2. ATROPINE SULFATE [Concomitant]
     Active Substance: ATROPINE SULFATE
     Indication: Product used for unknown indication
     Dosage: 1 DROP SL EVERY BED TIME
     Route: 065
  3. FLUOXETINE [Concomitant]
     Active Substance: FLUOXETINE HYDROCHLORIDE
     Indication: Product used for unknown indication
     Dosage: 40 MG EVERY MORNING
     Route: 065

REACTIONS (4)
  - Cardiovascular symptom [Unknown]
  - Left atrial enlargement [Unknown]
  - Psychotic symptom [Recovering/Resolving]
  - Sedation [Unknown]
